FAERS Safety Report 26165429 (Version 1)
Quarter: 2025Q4

REPORT INFORMATION
  Report Type: Spontaneous
  Country: CA (occurrence: CA)
  Receive Date: 20251216
  Receipt Date: 20251216
  Transmission Date: 20260118
  Serious: Yes (Other)
  Sender: NOVARTIS
  Company Number: CA-002147023-NVSC2025CA190212

PATIENT
  Sex: Male

DRUGS (3)
  1. PLUVICTO [Suspect]
     Active Substance: LUTETIUM LU-177 VIPIVOTIDE TETRAXETAN
     Indication: Product used for unknown indication
     Dosage: UNK (FIRST DOSE), EVERY 6 WEEKS
     Route: 065
     Dates: start: 20250909
  2. PLUVICTO [Suspect]
     Active Substance: LUTETIUM LU-177 VIPIVOTIDE TETRAXETAN
     Dosage: UNK (SECOND DOSE), EVERY 6 WEEKS
     Route: 065
     Dates: start: 20251021
  3. PLUVICTO [Suspect]
     Active Substance: LUTETIUM LU-177 VIPIVOTIDE TETRAXETAN
     Dosage: UNK (THIRD DOSE), EVERY 6 WEEKS
     Route: 065
     Dates: start: 20251202

REACTIONS (2)
  - Abdominal hernia [Unknown]
  - Dry mouth [Unknown]
